FAERS Safety Report 5419221-4 (Version None)
Quarter: 2007Q3

REPORT INFORMATION
  Report Type: 
  Country: None (occurrence: None)
  Receive Date: 20070817
  Receipt Date: 20070817
  Transmission Date: 20080115
  Serious: Yes (Life-Threatening, Hospitalization)
  Sender: FDA-Public Use
  Company Number: None

PATIENT
  Age: 50 Year
  Sex: Female
  Weight: 184.614 kg

DRUGS (13)
  1. CYTOXAN [Suspect]
     Indication: FOLLICLE CENTRE LYMPHOMA, FOLLICULAR GRADE I, II, III
     Dosage: IV
     Route: 042
     Dates: start: 20010604, end: 20011001
  2. ADRIAMYCIN PFS [Suspect]
     Indication: FOLLICLE CENTRE LYMPHOMA, FOLLICULAR GRADE I, II, III
     Dosage: IV
     Route: 042
     Dates: start: 20010604, end: 20011001
  3. ONCOVIN [Suspect]
     Indication: FOLLICLE CENTRE LYMPHOMA, FOLLICULAR GRADE I, II, III
     Dosage: IV
     Route: 042
     Dates: start: 20010604, end: 20011001
  4. RITUXAN [Suspect]
     Indication: FOLLICLE CENTRE LYMPHOMA, FOLLICULAR GRADE I, II, III
     Dosage: IV
     Route: 042
     Dates: start: 20010604, end: 20011001
  5. PREDNISONE [Suspect]
     Indication: FOLLICLE CENTRE LYMPHOMA, FOLLICULAR GRADE I, II, III
     Dosage: PO
     Route: 048
     Dates: start: 20010604, end: 20011001
  6. RITUXAN [Suspect]
     Indication: FOLLICLE CENTRE LYMPHOMA, FOLLICULAR GRADE I, II, III
     Dosage: IV
     Route: 042
     Dates: start: 20050201, end: 20050325
  7. INSULIN [Concomitant]
  8. AVANDIA [Concomitant]
  9. LOPID [Concomitant]
  10. NEURONTIN [Concomitant]
  11. ZOCOR [Concomitant]
  12. SPIRONOLACTONE [Concomitant]
  13. PROTON PUMP INHIBITOR [Concomitant]

REACTIONS (1)
  - ACUTE MYELOMONOCYTIC LEUKAEMIA [None]
